FAERS Safety Report 7347307-6 (Version None)
Quarter: 2011Q1

REPORT INFORMATION
  Report Type: 
  Country: None (occurrence: None)
  Receive Date: 20110311
  Receipt Date: 20110307
  Transmission Date: 20110831
  Serious: Yes (Hospitalization, Other)
  Sender: FDA-Public Use
  Company Number: FR-ROCHE-697779

PATIENT
  Sex: Male

DRUGS (13)
  1. NEFOPAM [Concomitant]
     Route: 042
     Dates: start: 20100319
  2. RIBAVIRIN [Suspect]
     Dosage: TEMPORARILY INTERRUPTED.
     Route: 048
     Dates: start: 20100107, end: 20100212
  3. ESOMEPRAZOLE [Concomitant]
     Route: 048
     Dates: start: 20100319
  4. ENOXAPARIN SODIUM [Concomitant]
     Route: 058
     Dates: start: 20100319
  5. PREGABALIN [Concomitant]
     Dosage: REORTED AS: PREGALBINE.
     Route: 048
     Dates: start: 20100319, end: 20100401
  6. PEGINTERFERON ALFA-2A [Suspect]
     Dosage: TEMPORARILY INTERRUPTED.
     Route: 058
     Dates: start: 20100107, end: 20100319
  7. PEGINTERFERON ALFA-2A [Suspect]
     Route: 058
     Dates: start: 20100402, end: 20100507
  8. RIBAVIRIN [Suspect]
     Route: 048
     Dates: start: 20100402, end: 20100418
  9. IRON [Concomitant]
     Route: 048
     Dates: start: 20100319, end: 20100415
  10. MORPHINE [Concomitant]
     Route: 058
  11. IRON [Concomitant]
     Route: 048
  12. AMITRIPTYLINE [Concomitant]
     Route: 048
     Dates: start: 20100319
  13. PARACETAMOL [Concomitant]
     Route: 048
     Dates: start: 20100319

REACTIONS (4)
  - HYPERTENSION [None]
  - SINUS TACHYCARDIA [None]
  - JOINT DISLOCATION [None]
  - LIMB CRUSHING INJURY [None]
